FAERS Safety Report 6617576-6 (Version None)
Quarter: 2010Q1

REPORT INFORMATION
  Report Type: 
  Country: None (occurrence: None)
  Receive Date: 20100308
  Receipt Date: 20100225
  Transmission Date: 20100710
  Serious: Yes (Hospitalization)
  Sender: FDA-Public Use
  Company Number: US-CELGENEUS-163-20785-10030129

PATIENT
  Sex: Male

DRUGS (1)
  1. THALOMID [Suspect]
     Indication: LYMPHOMA
     Route: 048
     Dates: start: 20100101, end: 20100101

REACTIONS (3)
  - GASTROINTESTINAL DISORDER [None]
  - HAEMATOCHEZIA [None]
  - SINUSITIS [None]
